FAERS Safety Report 21339922 (Version 2)
Quarter: 2022Q4

REPORT INFORMATION
  Report Type: Spontaneous
  Country: BR (occurrence: BR)
  Receive Date: 20220915
  Receipt Date: 20221014
  Transmission Date: 20230113
  Serious: Yes (Other)
  Sender: FDA-Public Use
  Company Number: BR-BRISTOL-MYERS SQUIBB COMPANY-2022-101239

PATIENT
  Age: 70 Year
  Sex: Female

DRUGS (3)
  1. ELIQUIS [Suspect]
     Active Substance: APIXABAN
     Indication: Cerebrovascular accident prophylaxis
     Route: 048
     Dates: start: 2018
  2. SOTALOL [Concomitant]
     Active Substance: SOTALOL
     Indication: Heart rate irregular
     Dosage: FOR THE 160 MG  TABLET, SHE SPLITS  INTO 4  PIECES  AND TAKES ONE QUARTER IN  THE MORNING AND ONE QU
     Route: 048
     Dates: start: 2018
  3. LEVOTHYROXINE [Concomitant]
     Active Substance: LEVOTHYROXINE
     Indication: Thyroid disorder
     Dosage: START DATE: SOME YEARS BEFORE ELIQUIS?STOP DATE: STILL IN TREATMENT
     Route: 048

REACTIONS (4)
  - Breast mass [Recovered/Resolved]
  - Fall [Unknown]
  - Limb injury [Unknown]
  - Chest injury [Unknown]

NARRATIVE: CASE EVENT DATE: 20211001
